FAERS Safety Report 7003918-9 (Version None)
Quarter: 2010Q3

REPORT INFORMATION
  Report Type: 
  Country: None (occurrence: None)
  Receive Date: 20100917
  Receipt Date: 20100902
  Transmission Date: 20110219
  Serious: Yes (Other)
  Sender: FDA-Public Use
  Company Number: 2010AP000084

PATIENT
  Sex: Male

DRUGS (3)
  1. MYCOPHENOLATE MOFETIL [Suspect]
     Dosage: 1000 MG, PO, 500 MG, BID, PO
     Route: 048
     Dates: start: 20090515, end: 20090901
  2. MYCOPHENOLATE MOFETIL [Suspect]
     Dosage: 1000 MG, PO, 500 MG, BID, PO
     Route: 048
     Dates: start: 20090901
  3. MYCOPHENOLATE MOFETIL [Concomitant]

REACTIONS (3)
  - CREATININE RENAL CLEARANCE DECREASED [None]
  - DIARRHOEA [None]
  - PRODUCT SUBSTITUTION ISSUE [None]
